FAERS Safety Report 4824866-6 (Version None)
Quarter: 2005Q4

REPORT INFORMATION
  Report Type: 
  Country: None (occurrence: None)
  Receive Date: 20051012
  Receipt Date: 20050714
  Transmission Date: 20060501
  Serious: No
  Sender: FDA-Public Use
  Company Number: 2005S1000155

PATIENT
  Age: 85 Year
  Weight: 51 kg

DRUGS (11)
  1. CUBICIN [Suspect]
     Indication: STAPHYLOCOCCAL SEPSIS
     Dosage: 300 MG; Q24H; IV
     Route: 042
     Dates: start: 20050706
  2. CARDURA [Concomitant]
  3. TOPROL-XL [Concomitant]
  4. ECOTRIN [Concomitant]
  5. ZOCOR [Concomitant]
  6. HEPARIN [Concomitant]
  7. ZOVIRAX COLD SORE CREAM [Concomitant]
  8. ARANESP [Concomitant]
  9. LEXAPRO [Concomitant]
  10. FLOMAX [Concomitant]
  11. VANCOMYCIN [Concomitant]

REACTIONS (1)
  - VISION BLURRED [None]
